FAERS Safety Report 9653346 (Version 3)
Quarter: 2013Q4

REPORT INFORMATION
  Report Type: Spontaneous
  Country: US (occurrence: US)
  Receive Date: 20131029
  Receipt Date: 20131204
  Transmission Date: 20140711
  Serious: Yes (Hospitalization, Disabling, Other)
  Sender: FDA-Public Use
  Company Number: US-009507513-1205USA02103

PATIENT
  Sex: Male
  Weight: 82.54 kg

DRUGS (11)
  1. FOSAMAX [Suspect]
     Indication: OSTEOPOROSIS
     Dosage: 10 MG, UNK
     Route: 048
     Dates: start: 200111, end: 200806
  2. FOSAMAX [Suspect]
     Dosage: 70 MG, UNK
     Route: 048
     Dates: start: 200111, end: 200806
  3. FOSAMAX [Suspect]
     Indication: OSTEOPOROSIS
     Dosage: 10 MG, UNK
     Route: 048
     Dates: start: 20011115, end: 200806
  4. FOSAMAX [Suspect]
     Dosage: 70 MG, UNK
     Route: 048
     Dates: start: 20011115, end: 200806
  5. VENTOLIN (ALBUTEROL SULFATE) [Concomitant]
     Indication: CHRONIC OBSTRUCTIVE PULMONARY DISEASE
  6. AZMACORT [Concomitant]
     Indication: CHRONIC OBSTRUCTIVE PULMONARY DISEASE
  7. LIPITOR [Concomitant]
     Indication: HYPERLIPIDAEMIA
     Dosage: 10 MG, QD
     Route: 048
     Dates: start: 19970801
  8. CORTICOSTEROIDS (UNSPECIFIED) [Concomitant]
     Indication: CHRONIC OBSTRUCTIVE PULMONARY DISEASE
     Dosage: UNK
     Dates: start: 2007, end: 2012
  9. CORTICOSTEROIDS (UNSPECIFIED) [Concomitant]
     Indication: BRONCHITIS CHRONIC
  10. ADVAIR [Concomitant]
     Indication: CHRONIC OBSTRUCTIVE PULMONARY DISEASE
  11. CARDURA [Concomitant]
     Indication: BENIGN PROSTATIC HYPERPLASIA
     Dosage: 8 MG, QD

REACTIONS (21)
  - Femur fracture [Not Recovered/Not Resolved]
  - Intramedullary rod insertion [Unknown]
  - Osteoporosis [Not Recovered/Not Resolved]
  - Stress fracture [Not Recovered/Not Resolved]
  - Low turnover osteopathy [Not Recovered/Not Resolved]
  - Skin cancer [Unknown]
  - Aortic bypass [Unknown]
  - Surgery [Unknown]
  - Stent placement [Unknown]
  - Fracture nonunion [Unknown]
  - Depression [Not Recovered/Not Resolved]
  - Anxiety [Not Recovered/Not Resolved]
  - Spinal compression fracture [Unknown]
  - Fall [Unknown]
  - Coronary artery disease [Unknown]
  - Foot fracture [Unknown]
  - Umbilical hernia [Unknown]
  - Peripheral arterial occlusive disease [Unknown]
  - Spinal osteoarthritis [Unknown]
  - Bronchitis chronic [Not Recovered/Not Resolved]
  - Pain in extremity [Unknown]
